FAERS Safety Report 17657772 (Version 3)
Quarter: 2020Q2

REPORT INFORMATION
  Report Type: Report from Study
  Country: AU (occurrence: AU)
  Receive Date: 20200411
  Receipt Date: 20200601
  Transmission Date: 20200713
  Serious: Yes (Death, Hospitalization)
  Sender: FDA-Public Use
  Company Number: AU-ROCHE-2392716

PATIENT
  Age: 68 Year
  Sex: Female
  Weight: 72.4 kg

DRUGS (106)
  1. PEGFILGRASTIM [Concomitant]
     Active Substance: PEGFILGRASTIM
     Route: 058
     Dates: start: 20200224, end: 20200224
  2. FILGRASTIM [Concomitant]
     Active Substance: FILGRASTIM
     Route: 058
     Dates: start: 20190605, end: 20190703
  3. NORMAL SALINE [Concomitant]
     Active Substance: SODIUM CHLORIDE
     Route: 042
     Dates: start: 20190731, end: 20190731
  4. TARGIN [Concomitant]
     Active Substance: NALOXONE HYDROCHLORIDE\OXYCODONE HYDROCHLORIDE
     Route: 048
     Dates: start: 20191217
  5. METOCLOPRAMIDE. [Concomitant]
     Active Substance: METOCLOPRAMIDE
     Route: 048
     Dates: start: 20190627
  6. PARACETAMOL [Concomitant]
     Active Substance: ACETAMINOPHEN
     Indication: PREMEDICATION
     Route: 048
     Dates: start: 20190627
  7. NILSTAT [NYSTATIN] [Concomitant]
     Indication: ORAL CANDIDIASIS
     Route: 061
     Dates: start: 20200219
  8. FENTANYL. [Concomitant]
     Active Substance: FENTANYL
     Route: 042
     Dates: start: 20190925, end: 20190925
  9. PROPOFOL. [Concomitant]
     Active Substance: PROPOFOL
     Route: 042
     Dates: start: 20190925, end: 20190925
  10. TRAMADOL. [Concomitant]
     Active Substance: TRAMADOL
     Route: 042
     Dates: start: 20190925, end: 20190925
  11. DEXAMETHASONE. [Concomitant]
     Active Substance: DEXAMETHASONE
     Route: 042
     Dates: start: 20190925, end: 20190925
  12. RED BLOOD CELLS, CONCENTRATED [Concomitant]
     Active Substance: HUMAN RED BLOOD CELL
     Dosage: 1 UNITS
     Route: 042
     Dates: start: 20190706, end: 20190706
  13. MEROPENEM. [Concomitant]
     Active Substance: MEROPENEM
     Indication: DIARRHOEA
     Route: 042
     Dates: start: 20190731, end: 20190801
  14. ZANUBRUTINIB [Suspect]
     Active Substance: ZANUBRUTINIB
     Indication: B-CELL LYMPHOMA
     Dosage: LAST DOSAGE PRIOR TO SAE: 22/AUG/2019
     Route: 048
     Dates: start: 20190627, end: 20200210
  15. AMOXICILLIN. [Concomitant]
     Active Substance: AMOXICILLIN
     Indication: URINARY TRACT INFECTION
     Route: 048
     Dates: start: 20190828, end: 20190918
  16. CLAVULANIC ACID [Concomitant]
     Active Substance: CLAVULANIC ACID
     Indication: UROSEPSIS
     Dosage: 1 TABLET DAILY.
     Route: 048
     Dates: start: 20190828, end: 20190918
  17. FILGRASTIM [Concomitant]
     Active Substance: FILGRASTIM
     Indication: NEUTROPENIA
     Dosage: ONCE DAILY ON MONDAY, WEDNESDAY AND FRIDAY
     Route: 058
     Dates: start: 20190808, end: 20190905
  18. FILGRASTIM [Concomitant]
     Active Substance: FILGRASTIM
     Route: 058
     Dates: start: 20191114, end: 20191120
  19. NORMAL SALINE [Concomitant]
     Active Substance: SODIUM CHLORIDE
     Route: 042
     Dates: start: 20190706, end: 20190706
  20. NORMAL SALINE [Concomitant]
     Active Substance: SODIUM CHLORIDE
     Route: 042
     Dates: start: 20190725, end: 20190725
  21. GENTAMICIN. [Concomitant]
     Active Substance: GENTAMICIN
     Indication: DIARRHOEA
     Route: 042
     Dates: start: 20190731, end: 20190731
  22. DIAZEPAM. [Concomitant]
     Active Substance: DIAZEPAM
     Indication: ANXIETY
  23. DEXAMETHASONE. [Concomitant]
     Active Substance: DEXAMETHASONE
     Indication: PREMEDICATION
     Route: 042
     Dates: start: 20190627
  24. BUSCOPAN [Concomitant]
     Active Substance: BUTYLSCOPOLAMINE BROMIDE
     Indication: MUSCLE SPASMS
     Route: 048
     Dates: start: 20190707, end: 20190707
  25. MORPHINE [Concomitant]
     Active Substance: MORPHINE
     Indication: MUSCLE SPASMS
     Route: 058
     Dates: start: 20190707, end: 20190707
  26. POTASSIUM CHLORIDE. [Concomitant]
     Active Substance: POTASSIUM CHLORIDE
     Route: 065
     Dates: start: 20190709, end: 20200210
  27. PROPOFOL. [Concomitant]
     Active Substance: PROPOFOL
     Route: 042
     Dates: start: 20190925, end: 20190925
  28. KETAMINE [Concomitant]
     Active Substance: KETAMINE
     Indication: MUSCLE SPASMS
     Route: 042
     Dates: start: 20190707, end: 20190707
  29. DIAZEPAM. [Concomitant]
     Active Substance: DIAZEPAM
     Indication: MUSCLE SPASMS
     Route: 042
     Dates: start: 20191125, end: 20200209
  30. FILGRASTIM [Concomitant]
     Active Substance: FILGRASTIM
     Dosage: ONCE DAILY ON MONDAY, WEDNESDAY AND FRIDAY
     Route: 058
     Dates: start: 20190713, end: 20190730
  31. FILGRASTIM [Concomitant]
     Active Substance: FILGRASTIM
     Dosage: ONCE DAILY ON MONDAY, WEDNESDAY AND FRIDAY
     Route: 058
     Dates: start: 20190704, end: 20190712
  32. NORMAL SALINE [Concomitant]
     Active Substance: SODIUM CHLORIDE
     Indication: INFUSION RELATED REACTION
     Route: 042
     Dates: start: 20190627
  33. NORMAL SALINE [Concomitant]
     Active Substance: SODIUM CHLORIDE
     Route: 042
     Dates: start: 20190705, end: 20190706
  34. NORMAL SALINE [Concomitant]
     Active Substance: SODIUM CHLORIDE
     Route: 042
     Dates: start: 20190803, end: 20190803
  35. CEFTRIAXONE. [Concomitant]
     Active Substance: CEFTRIAXONE
     Indication: DIARRHOEA
     Route: 042
     Dates: start: 20190802, end: 20190806
  36. DIAZEPAM. [Concomitant]
     Active Substance: DIAZEPAM
     Indication: NEUTROPENIA
     Route: 048
     Dates: start: 20200225
  37. PANADOL [Concomitant]
     Active Substance: ACETAMINOPHEN
     Indication: PAIN
     Route: 048
     Dates: start: 201812
  38. LORAZEPAM. [Concomitant]
     Active Substance: LORAZEPAM
     Indication: MUSCLE SPASMS
     Route: 060
     Dates: start: 20190707, end: 20190707
  39. FUNGILIN [Concomitant]
     Active Substance: AMPHOTERICIN B
     Indication: ORAL CANDIDIASIS
     Route: 061
     Dates: start: 20190605, end: 20190615
  40. ONDANSETRON [Concomitant]
     Active Substance: ONDANSETRON
     Indication: DIARRHOEA
     Route: 042
     Dates: start: 20190804, end: 20190804
  41. AUGMENTIN DUO [Concomitant]
     Active Substance: AMOXICILLIN\CLAVULANATE POTASSIUM
     Route: 048
     Dates: start: 20191011, end: 20191215
  42. POSACONAZOLE [Concomitant]
     Active Substance: POSACONAZOLE
     Route: 048
     Dates: start: 20200221
  43. NILSTAT [NYSTATIN] [Concomitant]
     Route: 061
     Dates: start: 20190706, end: 20190805
  44. FENTANYL. [Concomitant]
     Active Substance: FENTANYL
     Route: 042
     Dates: start: 20190925, end: 20190925
  45. RED BLOOD CELLS, CONCENTRATED [Concomitant]
     Active Substance: HUMAN RED BLOOD CELL
     Indication: ANAEMIA
     Dosage: 1 UNITS
     Route: 042
     Dates: start: 20190704, end: 20190706
  46. OSTELIN [ERGOCALCIFEROL] [Concomitant]
     Indication: VITAMIN D DEFICIENCY
     Route: 048
     Dates: start: 20190504, end: 20200210
  47. FILGRASTIM [Concomitant]
     Active Substance: FILGRASTIM
     Indication: NEUTROPHIL COUNT DECREASED
     Dosage: ONCE DAILY ON MONDAY, WEDNESDAY AND FRIDAY
     Route: 058
     Dates: start: 20190906, end: 20191113
  48. NORMAL SALINE [Concomitant]
     Active Substance: SODIUM CHLORIDE
     Route: 042
     Dates: start: 20190801, end: 20190801
  49. NORMAL SALINE [Concomitant]
     Active Substance: SODIUM CHLORIDE
     Route: 042
     Dates: start: 20190822, end: 20190822
  50. NORMAL SALINE [Concomitant]
     Active Substance: SODIUM CHLORIDE
     Route: 042
     Dates: start: 20190919, end: 20190919
  51. PROMETHAZINE [Concomitant]
     Active Substance: PROMETHAZINE HYDROCHLORIDE
     Indication: PREMEDICATION
     Route: 042
     Dates: start: 20190725
  52. TARGIN [Concomitant]
     Active Substance: NALOXONE HYDROCHLORIDE\OXYCODONE HYDROCHLORIDE
     Route: 048
     Dates: start: 20191217
  53. ESOMEPRAZOLE. [Concomitant]
     Active Substance: ESOMEPRAZOLE MAGNESIUM
     Indication: GASTROOESOPHAGEAL REFLUX DISEASE
     Route: 048
     Dates: start: 20180323
  54. ACICLOVIR [Concomitant]
     Active Substance: ACYCLOVIR
     Route: 048
     Dates: start: 20190529
  55. GASTROSTOP [Concomitant]
     Indication: DIARRHOEA
     Route: 048
     Dates: start: 20190704
  56. AUGMENTIN DUO [Concomitant]
     Active Substance: AMOXICILLIN\CLAVULANATE POTASSIUM
     Indication: URINARY TRACT INFECTION
     Route: 048
     Dates: start: 20190221
  57. DEXAMETHASONE. [Concomitant]
     Active Substance: DEXAMETHASONE
     Route: 042
     Dates: start: 20190925, end: 20190925
  58. RED BLOOD CELLS, CONCENTRATED [Concomitant]
     Active Substance: HUMAN RED BLOOD CELL
     Dosage: 2 UNITS
     Route: 042
     Dates: start: 20190801, end: 20190801
  59. ALBUMEX 4 [Concomitant]
     Indication: DIARRHOEA
     Route: 042
     Dates: start: 20190801, end: 20190801
  60. POTASSIUM PHOSPHATE [POTASSIUM PHOSPHATE DIBASIC;POTASSIUM PHOSPHATE M [Concomitant]
     Indication: INFUSION RELATED REACTION
     Route: 042
     Dates: start: 20190708, end: 20190708
  61. SLOW-K [Concomitant]
     Active Substance: POTASSIUM CHLORIDE
     Indication: INFUSION RELATED REACTION
     Route: 048
     Dates: start: 20190709
  62. DIAZEPAM. [Concomitant]
     Active Substance: DIAZEPAM
     Indication: NEUTROPENIA
     Route: 042
     Dates: start: 20190707, end: 20190707
  63. DIAZEPAM. [Concomitant]
     Active Substance: DIAZEPAM
     Indication: ANXIETY
  64. KENACOMB [GRAMICIDIN;NEOMYCIN SULFATE;NYSTATIN;TRIAMCINOLONE ACETONIDE [Concomitant]
     Route: 061
     Dates: start: 20200213
  65. FILGRASTIM [Concomitant]
     Active Substance: FILGRASTIM
     Dosage: MONDAY, WEDNESDAY,?FRIDAY
     Route: 058
     Dates: start: 20191125, end: 20200209
  66. MICONAZOLE. [Concomitant]
     Active Substance: MICONAZOLE
     Route: 061
     Dates: start: 20190919, end: 20191002
  67. TARGIN [Concomitant]
     Active Substance: NALOXONE HYDROCHLORIDE\OXYCODONE HYDROCHLORIDE
     Indication: PAIN
     Route: 048
     Dates: start: 201604, end: 20191216
  68. BACTRIM DS [Concomitant]
     Active Substance: SULFAMETHOXAZOLE\TRIMETHOPRIM
     Route: 048
     Dates: start: 20190627
  69. ALLOPURINOL. [Concomitant]
     Active Substance: ALLOPURINOL
     Route: 048
     Dates: start: 20190627
  70. ONDANSETRON [Concomitant]
     Active Substance: ONDANSETRON
     Indication: DIARRHOEA
     Route: 065
     Dates: start: 20190827, end: 20190828
  71. HARTMANN^S SOLUTION [Concomitant]
     Active Substance: CALCIUM CHLORIDE\POTASSIUM CHLORIDE\SODIUM CHLORIDE\SODIUM LACTATE
     Indication: DIARRHOEA
     Route: 042
     Dates: start: 20190801, end: 20190801
  72. HARTMANN^S SOLUTION [Concomitant]
     Active Substance: CALCIUM CHLORIDE\POTASSIUM CHLORIDE\SODIUM CHLORIDE\SODIUM LACTATE
     Route: 042
     Dates: start: 20190925, end: 20190925
  73. LIGNOCAINE [LIDOCAINE] [Concomitant]
     Active Substance: LIDOCAINE
     Route: 065
  74. CEPHAZOLIN [CEFAZOLIN] [Concomitant]
     Route: 042
     Dates: start: 20190925, end: 20190925
  75. DAKTARIN [MICONAZOLE] [Concomitant]
     Active Substance: MICONAZOLE
     Indication: RASH
     Dosage: 1 OTHER UNITS
     Route: 061
     Dates: start: 20190919, end: 20191002
  76. AMOXICILLIN. [Concomitant]
     Active Substance: AMOXICILLIN
     Route: 048
     Dates: start: 20190808, end: 20190821
  77. FILGRASTIM [Concomitant]
     Active Substance: FILGRASTIM
     Dosage: ONCE DAILY ON MONDAY, WEDNESDAY AND FRIDAY
     Route: 058
     Dates: start: 20190731, end: 20190807
  78. NORMAL SALINE [Concomitant]
     Active Substance: SODIUM CHLORIDE
     Route: 042
     Dates: start: 20190705, end: 20190705
  79. NORMAL SALINE [Concomitant]
     Active Substance: SODIUM CHLORIDE
     Route: 042
     Dates: start: 20190708, end: 20190708
  80. TAZOCIN [Concomitant]
     Active Substance: PIPERACILLIN SODIUM\TAZOBACTAM SODIUM
     Indication: DIARRHOEA
     Route: 065
     Dates: start: 20190731, end: 20190731
  81. FUROSEMIDE. [Concomitant]
     Active Substance: FUROSEMIDE
     Route: 048
     Dates: start: 20190706, end: 20190706
  82. LORATADINE. [Concomitant]
     Active Substance: LORATADINE
     Indication: PREMEDICATION
     Route: 048
     Dates: start: 20190627
  83. PHENERGAN [Concomitant]
     Active Substance: PROMETHAZINE HYDROCHLORIDE
     Indication: INFUSION RELATED REACTION
     Route: 042
     Dates: start: 20190704, end: 20190704
  84. OXYCODONE [Concomitant]
     Active Substance: OXYCODONE
     Indication: PAIN
     Route: 048
     Dates: start: 20180602
  85. TRAMADOL. [Concomitant]
     Active Substance: TRAMADOL
     Route: 042
     Dates: start: 20190925, end: 20190925
  86. RED BLOOD CELLS, CONCENTRATED [Concomitant]
     Active Substance: HUMAN RED BLOOD CELL
     Dosage: 1 UNITS
     Route: 042
     Dates: start: 20190920, end: 20190920
  87. RED BLOOD CELLS, CONCENTRATED [Concomitant]
     Active Substance: HUMAN RED BLOOD CELL
     Dosage: 2 UNITS
     Route: 042
     Dates: start: 20190823, end: 20190823
  88. KETAMINE [Concomitant]
     Active Substance: KETAMINE
     Route: 042
     Dates: start: 20190707, end: 20190708
  89. OBINUTUZUMAB. [Suspect]
     Active Substance: OBINUTUZUMAB
     Indication: B-CELL LYMPHOMA
     Dosage: DOSAGE: 1000 MG INTRAVENOUSLY ON DAYS 1, 8, AND 15 OF CYCLE 1, THEN 1000 MG ON DAY 1 OF CYCLES 2 TO
     Route: 042
     Dates: start: 20190627, end: 20200210
  90. NORMAL SALINE [Concomitant]
     Active Substance: SODIUM CHLORIDE
     Indication: MUSCLE SPASMS
     Route: 042
     Dates: start: 20190704, end: 20190704
  91. URAL [SODIUM BICARBONATE] [Concomitant]
     Route: 048
     Dates: start: 20190704
  92. DIAZEPAM. [Concomitant]
     Active Substance: DIAZEPAM
     Indication: MUSCLE SPASMS
     Route: 048
     Dates: start: 20190707, end: 20190707
  93. XARELTO [Concomitant]
     Active Substance: RIVAROXABAN
     Indication: PULMONARY EMBOLISM
     Route: 048
     Dates: start: 20190522
  94. QUETIAPINE. [Concomitant]
     Active Substance: QUETIAPINE
     Indication: DEPRESSION
     Route: 048
     Dates: start: 201506
  95. LORAZEPAM. [Concomitant]
     Active Substance: LORAZEPAM
     Indication: ANXIETY
     Route: 060
     Dates: start: 20190617
  96. MORPHINE [Concomitant]
     Active Substance: MORPHINE
     Route: 042
     Dates: start: 20190707, end: 20190707
  97. POSACONAZOLE [Concomitant]
     Active Substance: POSACONAZOLE
     Route: 048
     Dates: start: 20200219, end: 20200220
  98. MAGNESIUM SULFATE. [Concomitant]
     Active Substance: MAGNESIUM SULFATE
     Indication: INFUSION RELATED REACTION
     Route: 042
     Dates: start: 20190708, end: 20190708
  99. NORMAL SALINE [Concomitant]
     Active Substance: SODIUM CHLORIDE
     Indication: DIARRHOEA
     Route: 042
     Dates: start: 20190705, end: 20190705
  100. NORMAL SALINE [Concomitant]
     Active Substance: SODIUM CHLORIDE
     Route: 042
     Dates: start: 20190802, end: 20190803
  101. TAZOCIN [Concomitant]
     Active Substance: PIPERACILLIN SODIUM\TAZOBACTAM SODIUM
     Indication: INFUSION RELATED REACTION
     Route: 042
     Dates: start: 20190704, end: 20190709
  102. QUETIAPINE. [Concomitant]
     Active Substance: QUETIAPINE
     Indication: ANXIETY
  103. VENLAFAXINE SR [Concomitant]
     Indication: DEPRESSION
     Route: 048
     Dates: start: 2005
  104. ALLOPURINOL. [Concomitant]
     Active Substance: ALLOPURINOL
     Route: 048
     Dates: start: 20200217
  105. MORPHINE [Concomitant]
     Active Substance: MORPHINE
     Route: 042
     Dates: start: 20190707, end: 20190708
  106. HARTMANN^S SOLUTION [Concomitant]
     Active Substance: CALCIUM CHLORIDE\POTASSIUM CHLORIDE\SODIUM CHLORIDE\SODIUM LACTATE
     Indication: MUSCLE SPASMS
     Route: 042
     Dates: start: 20190707, end: 20190708

REACTIONS (3)
  - Urinary tract infection [Recovering/Resolving]
  - Death [Fatal]
  - Acute myeloid leukaemia [Not Recovered/Not Resolved]

NARRATIVE: CASE EVENT DATE: 20190822
